FAERS Safety Report 7481783-3 (Version None)
Quarter: 2011Q2

REPORT INFORMATION
  Report Type: 
  Country: None (occurrence: None)
  Receive Date: 20110516
  Receipt Date: 20110506
  Transmission Date: 20111010
  Serious: Yes (Other)
  Sender: FDA-Public Use
  Company Number: FR-ASTRAZENECA-2011SE27383

PATIENT
  Age: 22854 Day
  Sex: Female

DRUGS (11)
  1. NEXIUM [Suspect]
     Route: 048
     Dates: start: 20110311
  2. AMIKACIN [Concomitant]
  3. NEXIUM [Suspect]
     Route: 048
     Dates: start: 20110122, end: 20110310
  4. PASER [Concomitant]
  5. PYRILENE [Concomitant]
  6. TRAMADOL HCL [Concomitant]
     Dosage: 50
  7. ZYVOX [Suspect]
     Route: 048
     Dates: start: 20110122
  8. CYCLOSERINE [Concomitant]
     Dosage: 250
  9. FERROUS SULFATE TAB [Concomitant]
     Dosage: 80
  10. LEDERFOLINE [Concomitant]
     Dosage: 25
  11. MYAMBUTOL [Concomitant]
     Dosage: 400

REACTIONS (1)
  - ORAL CANDIDIASIS [None]
